FAERS Safety Report 12717120 (Version 1)
Quarter: 2016Q3

REPORT INFORMATION
  Report Type: Spontaneous
  Country: CH (occurrence: CH)
  Receive Date: 20160906
  Receipt Date: 20160906
  Transmission Date: 20161109
  Serious: Yes (Death, Other)
  Sender: FDA-Public Use
  Company Number: CH-MYLANLABS-2016M1037463

PATIENT

DRUGS (1)
  1. EPINEPHRINE MYLAN [Suspect]
     Active Substance: EPINEPHRINE
     Indication: SUICIDE ATTEMPT

REACTIONS (3)
  - Intentional product misuse [Fatal]
  - Cardiac arrest [Fatal]
  - Arrhythmia [Fatal]
